FAERS Safety Report 26098211 (Version 1)
Quarter: 2025Q4

REPORT INFORMATION
  Report Type: Spontaneous
  Country: EU (occurrence: EU)
  Receive Date: 20251127
  Receipt Date: 20251127
  Transmission Date: 20260118
  Serious: Yes (Other)
  Sender: AMGEN
  Company Number: EU-AMGEN-AUTSP2025231050

PATIENT
  Sex: Male

DRUGS (5)
  1. XGEVA [Suspect]
     Active Substance: DENOSUMAB
     Indication: Bone giant cell tumour benign
     Dosage: 120 MILLIGRAM (4.4 MG/KG), QWK (FOR 3 WEEKS) (LOADING DOSE)
     Route: 065
  2. XGEVA [Suspect]
     Active Substance: DENOSUMAB
     Indication: Prophylaxis
     Dosage: 120 MILLIGRAM, QMO (FOR 18 MONTHS)
     Route: 065
  3. XGEVA [Suspect]
     Active Substance: DENOSUMAB
     Dosage: 120 MILLIGRAM, Q3MO (FOR 6 MONTHS)
     Route: 065
  4. XGEVA [Suspect]
     Active Substance: DENOSUMAB
     Dosage: 120 MILLIGRAM, Q4MO
     Route: 065
  5. XGEVA [Suspect]
     Active Substance: DENOSUMAB
     Dosage: 10-30 MILLIGRAM, Q6WK
     Route: 065

REACTIONS (9)
  - Femur fracture [Unknown]
  - Acute kidney injury [Unknown]
  - Osteosclerosis [Recovered/Resolved]
  - Rib fracture [Unknown]
  - Off label use [Unknown]
  - Hypercalcaemia [Recovered/Resolved]
  - Fall [Unknown]
  - Cough [Unknown]
  - Hypocalcaemia [Recovered/Resolved]
